FAERS Safety Report 20202524 (Version 2)
Quarter: 2022Q1

REPORT INFORMATION
  Report Type: Report from Study
  Country: US (occurrence: US)
  Receive Date: 20211218
  Receipt Date: 20220217
  Transmission Date: 20220423
  Serious: Yes (Other)
  Sender: FDA-Public Use
  Company Number: US-ABBVIE-21K-163-4196308-00

PATIENT
  Sex: Female

DRUGS (2)
  1. HUMIRA [Suspect]
     Active Substance: ADALIMUMAB
     Indication: Rheumatoid arthritis
     Route: 058
  2. MODERNA COVID-19 VACCINE [Concomitant]
     Active Substance: ELASOMERAN
     Indication: COVID-19 immunisation
     Route: 030

REACTIONS (3)
  - Systemic lupus erythematosus [Not Recovered/Not Resolved]
  - Arthralgia [Not Recovered/Not Resolved]
  - Pain [Not Recovered/Not Resolved]
